FAERS Safety Report 7381684-5 (Version None)
Quarter: 2011Q1

REPORT INFORMATION
  Report Type: 
  Country: None (occurrence: None)
  Receive Date: 20110329
  Receipt Date: 20110319
  Transmission Date: 20110831
  Serious: Yes (Other)
  Sender: FDA-Public Use
  Company Number: IT-BAXTER-2011BH007651

PATIENT

DRUGS (5)
  1. RITUXIMAB [Suspect]
     Indication: B-CELL LYMPHOMA
     Route: 042
  2. VALACICLOVIR [Concomitant]
     Indication: PRODUCT USED FOR UNKNOWN INDICATION
     Route: 065
  3. CYCLOPHOSPHAMIDE [Suspect]
     Indication: B-CELL LYMPHOMA
     Route: 042
  4. ZEVALIN [Suspect]
     Indication: B-CELL LYMPHOMA
     Route: 042
  5. FLUDARABINE [Suspect]
     Indication: B-CELL LYMPHOMA
     Route: 042

REACTIONS (2)
  - NEUTROPENIA [None]
  - HERPES ZOSTER [None]
